FAERS Safety Report 8948744 (Version 5)
Quarter: 2014Q3

REPORT INFORMATION
  Report Type: Spontaneous
  Country: DE (occurrence: DE)
  Receive Date: 20121206
  Receipt Date: 20140829
  Transmission Date: 20150326
  Serious: Yes (Life-Threatening, Hospitalization, Disabling)
  Sender: FDA-Public Use
  Company Number: DE-ROCHE-1119736

PATIENT
  Age: 15 Year
  Sex: Male
  Weight: 63 kg

DRUGS (10)
  1. MERONEM [Concomitant]
     Active Substance: MEROPENEM
     Route: 065
  2. CEFUROXIM [Concomitant]
     Active Substance: CEFUROXIME
     Route: 065
  3. DICLOFENAC [Concomitant]
     Active Substance: DICLOFENAC
     Route: 065
  4. TEICOPLANIN [Concomitant]
     Active Substance: TEICOPLANIN
     Route: 065
  5. METRONIDAZOL [Concomitant]
     Active Substance: METRONIDAZOLE
     Route: 065
  6. AMBISOME [Concomitant]
     Active Substance: AMPHOTERICIN B
     Route: 065
  7. ROACTEMRA [Suspect]
     Active Substance: TOCILIZUMAB
     Indication: JUVENILE IDIOPATHIC ARTHRITIS
     Dosage: TWO DOSAGES AT AN INTERVAL OF 2 WEEKS.?TOTAL MONTHLY DOSE 480 MG
     Route: 065
     Dates: start: 20120520
  8. PREDNISOLON [Concomitant]
     Active Substance: PREDNISOLONE
     Route: 065
  9. PANTOPRAZOLE [Concomitant]
     Active Substance: PANTOPRAZOLE SODIUM
     Route: 065
  10. METHOTREXATE [Concomitant]
     Active Substance: METHOTREXATE
     Route: 058

REACTIONS (7)
  - Haematochezia [Unknown]
  - Rectal ulcer [Unknown]
  - Ileal perforation [Recovered/Resolved with Sequelae]
  - Gastrointestinal inflammation [Unknown]
  - Crohn^s disease [Unknown]
  - Septic shock [Recovered/Resolved]
  - Multi-organ failure [Recovered/Resolved]

NARRATIVE: CASE EVENT DATE: 20120606
